FAERS Safety Report 6269710-8 (Version None)
Quarter: 2009Q3

REPORT INFORMATION
  Report Type: 
  Country: None (occurrence: None)
  Receive Date: 20090716
  Receipt Date: 20090709
  Transmission Date: 20100115
  Serious: Yes (Death, Hospitalization, Other)
  Sender: FDA-Public Use
  Company Number: FR-ELI_LILLY_AND_COMPANY-FR200903006927

PATIENT
  Sex: Male
  Weight: 89 kg

DRUGS (5)
  1. PEMETREXED [Suspect]
     Indication: PLEURAL MESOTHELIOMA MALIGNANT
     Dosage: 1000 MG, UNKNOWN
     Route: 042
     Dates: start: 20090319, end: 20090319
  2. CISPLATIN [Suspect]
     Indication: PLEURAL MESOTHELIOMA MALIGNANT
     Dosage: 150 MG, UNKNOWN
     Route: 042
     Dates: start: 20090319, end: 20090319
  3. FOLIC ACID [Concomitant]
     Indication: SUPPLEMENTATION THERAPY
  4. VIT B12 [Concomitant]
     Indication: SUPPLEMENTATION THERAPY
  5. DEXAMETHASONE [Concomitant]
     Indication: SUPPLEMENTATION THERAPY

REACTIONS (13)
  - AIRWAY COMPLICATION OF ANAESTHESIA [None]
  - ASPIRATION TRACHEAL ABNORMAL [None]
  - FEBRILE BONE MARROW APLASIA [None]
  - HAEMODYNAMIC INSTABILITY [None]
  - HAEMOGLOBIN DECREASED [None]
  - HAEMOPTYSIS [None]
  - KLEBSIELLA INFECTION [None]
  - PERIPHERAL ISCHAEMIA [None]
  - PNEUMONIA ASPIRATION [None]
  - PSEUDOMONAS INFECTION [None]
  - SEPSIS [None]
  - THROMBOSIS [None]
  - WHITE BLOOD CELL COUNT DECREASED [None]
